FAERS Safety Report 9729656 (Version 2)
Quarter: 2013Q4

REPORT INFORMATION
  Report Type: Spontaneous
  Country: US (occurrence: US)
  Receive Date: 20131204
  Receipt Date: 20131204
  Transmission Date: 20140711
  Serious: No
  Sender: FDA-Public Use
  Company Number: US-GILEAD-2009-0020021

PATIENT
  Sex: Male
  Weight: 70.76 kg

DRUGS (20)
  1. LETAIRIS [Suspect]
     Indication: PULMONARY ARTERIAL HYPERTENSION
     Route: 048
     Dates: start: 20080911
  2. AMLODIPINE BESYLATE [Concomitant]
  3. DOXAZOSIN MESYLATE [Concomitant]
  4. COUMADIN [Concomitant]
  5. SIMVASTATIN [Concomitant]
  6. FUROSEMIDE [Concomitant]
  7. REVATIO [Concomitant]
  8. ALBUTEROL [Concomitant]
  9. SYMBICORT [Concomitant]
  10. FLOMAX [Concomitant]
  11. DARVOCET-N [Concomitant]
  12. HUMULIN R [Concomitant]
  13. NOVOLIN [Concomitant]
  14. DETROL [Concomitant]
  15. NEXIUM [Concomitant]
  16. NAMENDA [Concomitant]
  17. ARICEPT [Concomitant]
  18. FEOSOL [Concomitant]
  19. POTASSIUM CHLORIDE [Concomitant]
  20. ZINC [Concomitant]

REACTIONS (1)
  - Liver function test abnormal [Unknown]
